FAERS Safety Report 9391307 (Version 3)
Quarter: 2013Q3

REPORT INFORMATION
  Report Type: Spontaneous
  Country: US (occurrence: US)
  Receive Date: 20130709
  Receipt Date: 20130725
  Transmission Date: 20140515
  Serious: Yes (Congenital Anomaly, Other)
  Sender: FDA-Public Use
  Company Number: US-PFIZER INC-2012169408

PATIENT
  Age: 4 Month
  Sex: Male
  Weight: 3.4 kg

DRUGS (17)
  1. ETHINYL ESTRADIOL/NORGESTREL [Suspect]
     Indication: CONTRACEPTION
     Dosage: 1 DF(0.3 TO 0.03 MG), 1X/DAY
     Route: 064
     Dates: start: 20110518
  2. ETHINYL ESTRADIOL/NORGESTREL [Suspect]
     Dosage: 1 DF(0.3 TO 0.03 MG), 1X/DAY
     Route: 064
  3. ETHINYL ESTRADIOL/NORGESTREL [Suspect]
     Dosage: 1 DF(0.3 TO 0.03 MG), 1X/DAY
     Route: 064
  4. ETHINYL ESTRADIOL/NORGESTREL [Suspect]
     Dosage: 1 DF(0.3 TO 0.03 MG), 1X/DAY
     Route: 064
  5. ETHINYL ESTRADIOL/NORGESTREL [Suspect]
     Dosage: 1 DF(0.3 TO 0.03 MG), 1X/DAY
     Route: 064
  6. ETHINYL ESTRADIOL/NORGESTREL [Suspect]
     Dosage: 1 DF(0.3 TO 0.03 MG), 1X/DAY
     Route: 064
  7. ETHINYL ESTRADIOL/NORGESTREL [Suspect]
     Dosage: 1 DF(0.3 TO 0.03 MG), 1X/DAY
     Route: 064
  8. ETHINYL ESTRADIOL/NORGESTREL [Suspect]
     Dosage: 1 DF(0.3 TO 0.03 MG), 1X/DAY
     Route: 064
  9. ETHINYL ESTRADIOL/NORGESTREL [Suspect]
     Dosage: 1 DF(0.3 TO 0.03 MG), 1X/DAY
     Route: 064
  10. ETHINYL ESTRADIOL/NORGESTREL [Suspect]
     Dosage: 1 DF(0.3 TO 0.03 MG), 1X/DAY
     Route: 064
  11. ETHINYL ESTRADIOL/NORGESTREL [Suspect]
     Dosage: 1 DF(0.3 TO 0.03 MG), 1X/DAY
     Route: 064
  12. ETHINYL ESTRADIOL/NORGESTREL [Suspect]
     Dosage: 1 DF(0.3 TO 0.03 MG), 1X/DAY
     Route: 064
  13. ETHINYL ESTRADIOL/NORGESTREL [Suspect]
     Dosage: 1 DF(0.3 TO 0.03 MG), 1X/DAY
     Route: 064
     Dates: end: 20120215
  14. AZITHROMYCIN [Concomitant]
     Dosage: 500 MG, UNK
     Route: 064
     Dates: start: 20120413
  15. VITAFOL-OB DHA [Concomitant]
     Dosage: 65MG-1MG-250MG ONE PACK EVERY DAY
     Route: 064
     Dates: start: 20120509
  16. FERROUS SULFATE [Concomitant]
     Dosage: 325 MG, UNK
     Route: 064
     Dates: start: 20120511
  17. NITROFURANTOIN [Concomitant]
     Dosage: 100 MG, UNK
     Route: 064
     Dates: start: 20120731

REACTIONS (6)
  - Product quality issue [Unknown]
  - Maternal exposure during pregnancy [Unknown]
  - Skull malformation [Unknown]
  - Ankyloglossia congenital [Unknown]
  - Plagiocephaly [Unknown]
  - Cardiac murmur [Unknown]
